FAERS Safety Report 22519513 (Version 1)
Quarter: 2023Q2

REPORT INFORMATION
  Report Type: Spontaneous
  Country: US (occurrence: US)
  Receive Date: 20230605
  Receipt Date: 20230605
  Transmission Date: 20230721
  Serious: No
  Sender: FDA-Public Use
  Company Number: US-TAKEDA-2023TUS054626

PATIENT
  Sex: Female
  Weight: 73 kg

DRUGS (4)
  1. CARBATROL [Suspect]
     Active Substance: CARBAMAZEPINE
     Indication: Trigeminal neuralgia
     Dosage: 1000 MILLIGRAM
     Route: 065
     Dates: start: 1996
  2. CARBATROL [Suspect]
     Active Substance: CARBAMAZEPINE
     Dosage: 200 MILLIGRAM, BID
     Route: 065
  3. ESCITALOPRAM [Concomitant]
     Active Substance: ESCITALOPRAM OXALATE
     Indication: Discomfort
     Dosage: 20 MILLIGRAM, QD
  4. ESCITALOPRAM [Concomitant]
     Active Substance: ESCITALOPRAM OXALATE
     Indication: Pain

REACTIONS (9)
  - Drug ineffective [Unknown]
  - Pain [Unknown]
  - Discomfort [Unknown]
  - Rhinorrhoea [Unknown]
  - Lacrimation increased [Unknown]
  - Eye pain [Unknown]
  - Insurance issue [Unknown]
  - Paraesthesia [Unknown]
  - Headache [Unknown]
